FAERS Safety Report 14106056 (Version 4)
Quarter: 2020Q3

REPORT INFORMATION
  Report Type: Report from Study
  Country: FR (occurrence: FR)
  Receive Date: 20171018
  Receipt Date: 20180611
  Transmission Date: 20201104
  Serious: Yes (Hospitalization, Other)
  Sender: FDA-Public Use
  Company Number: FR-ASTRAZENECA-2017SF05098

PATIENT
  Age: 67 Year
  Sex: Male
  Weight: 50 kg

DRUGS (24)
  1. TREMELIMUMAB. [Suspect]
     Active Substance: TREMELIMUMAB
     Indication: NEOPLASM
     Route: 042
     Dates: start: 20170109, end: 20170331
  2. MACROGOL [Concomitant]
     Active Substance: POLYETHYLENE GLYCOLS
     Indication: CONSTIPATION
     Dosage: 1 SACHET AS REQUIRED
     Route: 048
     Dates: start: 20170123
  3. LOXEN (NICARDIPINE HYDROCHLORIDE) [Concomitant]
     Active Substance: NICARDIPINE HYDROCHLORIDE
     Indication: HYPERTENSION
     Dosage: 20 MG DAILY
     Route: 048
     Dates: end: 20170919
  4. FUCIDINE (FUSIDATE SODIUM) [Concomitant]
     Active Substance: FUSIDATE SODIUM
     Indication: RASH
     Dosage: 1 APPLICATION DAILY
     Route: 061
     Dates: start: 20170623, end: 20170701
  5. AUGMENTIN [Concomitant]
     Active Substance: AMOXICILLIN\CLAVULANATE POTASSIUM
     Indication: BRONCHITIS
     Route: 048
     Dates: start: 20170915, end: 20170924
  6. PANTOPRAZOLE [Concomitant]
     Active Substance: PANTOPRAZOLE
     Indication: PROPHYLAXIS AGAINST GASTROINTESTINAL ULCER
     Route: 048
     Dates: start: 20170915, end: 20170920
  7. MEDI4736 [Suspect]
     Active Substance: DURVALUMAB
     Indication: NEOPLASM
     Route: 042
  8. MEDI4736 [Suspect]
     Active Substance: DURVALUMAB
     Indication: NEOPLASM
     Route: 042
     Dates: start: 20170109, end: 20170331
  9. NERISONE [Concomitant]
     Active Substance: DIFLUCORTOLONE VALERATE
     Indication: RASH
     Dosage: 1 APPLICATION DAILY
     Route: 061
     Dates: start: 20170623
  10. XANAX [Concomitant]
     Active Substance: ALPRAZOLAM
     Indication: ANXIETY
     Dosage: 0.25 MG AS REQUIRED
     Route: 048
  11. ZOLPIDEM [Concomitant]
     Active Substance: ZOLPIDEM TARTRATE
     Indication: INSOMNIA
     Dosage: 10 MG AS REQUIRED
     Route: 048
     Dates: start: 20170315
  12. PREVISCAN (FLUINDIONE) [Concomitant]
     Active Substance: FLUINDIONE
     Indication: EMBOLISM
     Dosage: 1 TABLET
     Route: 048
     Dates: start: 201704, end: 20171003
  13. SODIUM BICARBONATE. [Concomitant]
     Active Substance: SODIUM BICARBONATE
     Indication: PROPHYLAXIS
     Dosage: AS REQUIRED
     Route: 048
     Dates: start: 20170109
  14. DEXERYL (GLYCEROL AND WHITE SOFT PARAFFIN AND LIQUID PARAFFIN) [Concomitant]
     Active Substance: GLYCERIN\MINERAL OIL\PETROLATUM
     Indication: PROPHYLAXIS
     Dosage: AS REQUIRED
     Route: 061
     Dates: start: 20170111
  15. LEVOTHYROX [Concomitant]
     Active Substance: LEVOTHYROXINE
     Indication: HYPOTHYROIDISM
     Route: 048
     Dates: start: 20170902, end: 20171001
  16. GLUCIDION [Concomitant]
     Active Substance: GLUCOSE, LIQUID\POTASSIUM CHLORIDE\SODIUM CHLORIDE
     Indication: DECREASED APPETITE
     Route: 042
     Dates: start: 20170916, end: 20170922
  17. SALINE [Concomitant]
     Active Substance: SODIUM CHLORIDE
     Indication: BRONCHITIS
     Route: 055
     Dates: start: 20170918, end: 20170927
  18. DOLIPRANE [Concomitant]
     Active Substance: ACETAMINOPHEN
     Indication: CANCER PAIN
     Dosage: 1 MG PRN
     Route: 048
     Dates: start: 201701
  19. MIANSERIN [Concomitant]
     Active Substance: MIANSERIN
     Indication: ANXIETY
     Route: 048
  20. CODEINED DAFALGAN [Concomitant]
     Indication: PAIN
     Dosage: AS REQUIRED
     Route: 048
     Dates: start: 20170916, end: 20170922
  21. NUTRITIONAL SUPPLEMENT [Concomitant]
     Active Substance: DIETARY SUPPLEMENT
     Indication: WEIGHT DECREASED
     Dosage: AS REQUIRED
     Route: 048
     Dates: start: 20170918, end: 20170927
  22. PLAVIX [Concomitant]
     Active Substance: CLOPIDOGREL BISULFATE
     Indication: EMBOLISM
     Dosage: 75 MG DAILY
     Route: 048
  23. TRIFLUCAN [Concomitant]
     Active Substance: FLUCONAZOLE
     Indication: ORAL CANDIDIASIS
     Route: 048
     Dates: start: 20170915, end: 20171001
  24. NUTRITIONAL SUPPLEMENT [Concomitant]
     Active Substance: DIETARY SUPPLEMENT
     Indication: DECREASED APPETITE
     Dosage: AS REQUIRED
     Route: 048
     Dates: start: 20170918, end: 20170927

REACTIONS (2)
  - Gastritis [Recovered/Resolved]
  - Duodenitis [Recovered/Resolved]

NARRATIVE: CASE EVENT DATE: 20170921
